FAERS Safety Report 7044579-2 (Version None)
Quarter: 2010Q4

REPORT INFORMATION
  Report Type: 
  Country: None (occurrence: None)
  Receive Date: 20101014
  Receipt Date: 20101007
  Transmission Date: 20110411
  Serious: Yes (Other)
  Sender: FDA-Public Use
  Company Number: JP-WYE-H18104110

PATIENT

DRUGS (1)
  1. ANCARON [Suspect]
     Indication: PROPHYLAXIS
     Dosage: 400 MG BID FOR 2 WEEKS AS LOADING DOSE AND 100-200 MG/DAY FOR MAINTENANCE
     Route: 048

REACTIONS (1)
  - LUNG DISORDER [None]
